FAERS Safety Report 5262271-1 (Version None)
Quarter: 2007Q1

REPORT INFORMATION
  Report Type: 
  Country: None (occurrence: None)
  Receive Date: 20070308
  Receipt Date: 20070308
  Transmission Date: 20070707
  Serious: Yes (Hospitalization)
  Sender: FDA-Public Use
  Company Number: None

PATIENT
  Sex: Female
  Weight: 7.9 kg

DRUGS (1)
  1. VENOFER [Suspect]
     Indication: IRON DEFICIENCY ANAEMIA
     Dosage: 100MG WEEKLY IV DRIP
     Route: 041
     Dates: start: 20070303, end: 20070303

REACTIONS (3)
  - INFUSION RELATED REACTION [None]
  - OEDEMA PERIPHERAL [None]
  - SWELLING [None]
